FAERS Safety Report 7645435-9 (Version None)
Quarter: 2011Q3

REPORT INFORMATION
  Report Type: 
  Country: None (occurrence: None)
  Receive Date: 20110729
  Receipt Date: 20110726
  Transmission Date: 20111222
  Serious: Yes (Other)
  Sender: FDA-Public Use
  Company Number: CHPA2011US09918

PATIENT
  Age: 71 Year
  Sex: Male

DRUGS (4)
  1. RANITIDINE [Concomitant]
     Indication: GASTROINTESTINAL DISORDER
     Dosage: 150 MG, QD
     Route: 048
     Dates: end: 20110101
  2. VOLTAREN [Suspect]
     Indication: ARTHRITIS
  3. PRILOSEC [Concomitant]
     Indication: GASTROINTESTINAL DISORDER
     Dosage: 2 X PER DAY
     Dates: start: 20110101
  4. VOLTAREN [Suspect]
     Indication: MORTON'S NEUROMA
     Dosage: 2 G, PRN
     Route: 061

REACTIONS (5)
  - ARTHRITIS [None]
  - TOE OPERATION [None]
  - OFF LABEL USE [None]
  - IMPAIRED HEALING [None]
  - DEVICE EXTRUSION [None]
